FAERS Safety Report 8840980 (Version 1)
Quarter: 2012Q4

REPORT INFORMATION
  Report Type: Report from Study
  Country: CA (occurrence: CA)
  Receive Date: 20121015
  Receipt Date: 20121015
  Transmission Date: 20130627
  Serious: Yes (Hospitalization, Other)
  Sender: FDA-Public Use
  Company Number: CA-ROCHE-1125444

PATIENT
  Age: 81 None
  Sex: Male

DRUGS (10)
  1. VEMURAFENIB [Suspect]
     Indication: METASTATIC MALIGNANT MELANOMA
     Route: 048
     Dates: start: 201208, end: 201209
  2. LIPITOR [Interacting]
     Indication: METASTATIC MALIGNANT MELANOMA
     Route: 048
  3. TRAZODONE [Interacting]
     Indication: METASTATIC MALIGNANT MELANOMA
     Route: 048
  4. MORPHINE [Concomitant]
     Route: 065
  5. VITAMIN D [Concomitant]
  6. STATEX (CANADA) [Concomitant]
  7. SENOKOT [Concomitant]
  8. SLOW-K [Concomitant]
  9. LACTULOSE [Concomitant]
  10. ALTACE [Concomitant]

REACTIONS (7)
  - Rash [Recovering/Resolving]
  - Pruritus [Recovering/Resolving]
  - Sunburn [Unknown]
  - Drug interaction [Unknown]
  - Fall [Unknown]
  - Hallucination [Unknown]
  - Confusional state [Unknown]
